FAERS Safety Report 23591999 (Version 1)
Quarter: 2024Q1

REPORT INFORMATION
  Report Type: Report from Study
  Country: US (occurrence: US)
  Receive Date: 20240304
  Receipt Date: 20240304
  Transmission Date: 20240410
  Serious: Yes (Other)
  Sender: FDA-Public Use
  Company Number: US-UCBSA-2024009894

PATIENT
  Sex: Male
  Weight: 90.703 kg

DRUGS (12)
  1. ROTIGOTINE [Suspect]
     Active Substance: ROTIGOTINE
     Indication: Parkinson^s disease
     Dosage: 8 MG/24HR PATCH 24 HOUR APPLY 1 PATCH TO SKIN ONCE DAILY TRANSDERMAL 30 DAY(S)
     Route: 062
     Dates: start: 2014
  2. RASAGILINE MESYLATE [Concomitant]
     Active Substance: RASAGILINE MESYLATE
     Indication: Product used for unknown indication
     Dosage: 1 MG TABLET TAKE 1 TABLET BY MOUTH EVERY DAY
     Route: 048
  3. RANITIDINE [Concomitant]
     Active Substance: RANITIDINE
     Indication: Product used for unknown indication
     Dosage: RANITIDINE + DIET MANAGE PROD 150 MG MISCELLANEOUS AS DIRECTED ORALLY
     Route: 048
  4. ERGOCALCIFEROL [Concomitant]
     Active Substance: ERGOCALCIFEROL
     Indication: Product used for unknown indication
     Dosage: 1.25 MG (50000 UT) CAPSULE 1 CAPSULE ORALLY ONCE A WEEK
     Route: 048
  5. ROPINIROLE HYDROCHLORIDE [Concomitant]
     Active Substance: ROPINIROLE HYDROCHLORIDE
     Indication: Product used for unknown indication
     Dosage: 2 MG TABLET TAKE 1 TABLET EVERY MORNING AT NOON AND IN THE EVENING
     Route: 048
  6. ROPINIROLE HYDROCHLORIDE [Concomitant]
     Active Substance: ROPINIROLE HYDROCHLORIDE
     Dosage: 1 MG TABLET 2 TABLETS ORALLY THREE TIMES A DAY
     Route: 048
  7. CARBIDOPA\LEVODOPA [Concomitant]
     Active Substance: CARBIDOPA\LEVODOPA
     Indication: Product used for unknown indication
     Dosage: 25-100 MG TABLET TAKE 1 TABLET BY MOUTH DAILY AT8PM
     Route: 048
  8. RYTARY [Concomitant]
     Active Substance: CARBIDOPA\LEVODOPA
     Indication: Parkinson^s disease
     Dosage: 1.25-245 MG CAPSULE EXTENDED RELEASE TAKE 1 CAPSULE BY MOUTH 3 TIMES A DAY
     Route: 048
     Dates: start: 2017
  9. RYTARY [Concomitant]
     Active Substance: CARBIDOPA\LEVODOPA
     Dosage: 16.25 1 TID, 6 AM, 11 AM AND 4 PM
     Route: 048
  10. AZILECT [Concomitant]
     Active Substance: RASAGILINE MESYLATE
     Indication: Parkinson^s disease
     Dosage: UNK
     Dates: start: 2014
  11. REQUIP [Concomitant]
     Active Substance: ROPINIROLE HYDROCHLORIDE
     Indication: Parkinson^s disease
     Dosage: 2 MILLIGRAM, 3X/DAY (TID)
  12. SINEMET [Concomitant]
     Active Substance: CARBIDOPA\LEVODOPA
     Indication: Parkinson^s disease
     Dosage: 25/100 1 QHS

REACTIONS (4)
  - Parkinson^s disease [Unknown]
  - Dementia Alzheimer^s type [Unknown]
  - Somnolence [Unknown]
  - Hypoacusis [Unknown]

NARRATIVE: CASE EVENT DATE: 20170101
